FAERS Safety Report 6756593-2 (Version None)
Quarter: 2010Q2

REPORT INFORMATION
  Report Type: 
  Country: None (occurrence: None)
  Receive Date: 20100604
  Receipt Date: 20100503
  Transmission Date: 20101027
  Serious: No
  Sender: FDA-Public Use
  Company Number: A0857697A

PATIENT
  Age: 32 Year
  Sex: Female

DRUGS (3)
  1. LAMICTAL [Suspect]
     Indication: BIPOLAR DISORDER
     Dosage: 75MG PER DAY
     Route: 048
     Dates: start: 20100324
  2. FIORICET [Concomitant]
  3. UNSPECIFIED MEDICATION [Concomitant]
     Indication: ANXIETY

REACTIONS (2)
  - PRURITUS GENERALISED [None]
  - RASH PAPULAR [None]
